FAERS Safety Report 9353669 (Version 1)
Quarter: 2013Q2

REPORT INFORMATION
  Report Type: Spontaneous
  Country: US (occurrence: None)
  Receive Date: 20130617
  Receipt Date: 20130617
  Transmission Date: 20140414
  Serious: No
  Sender: FDA-Public Use
  Company Number: None

PATIENT
  Sex: 0

DRUGS (1)
  1. CHILDREN^S WALZYR ALL DAY ALLERGY [Suspect]

REACTIONS (7)
  - Paraesthesia [None]
  - Oropharyngeal pain [None]
  - Chest pain [None]
  - Diarrhoea [None]
  - Abdominal discomfort [None]
  - Product quality issue [None]
  - Accidental exposure to product [None]
